FAERS Safety Report 18240477 (Version 1)
Quarter: 2020Q3

REPORT INFORMATION
  Report Type: Spontaneous
  Country: US (occurrence: US)
  Receive Date: 20200904
  Receipt Date: 20200904
  Transmission Date: 20201103
  Serious: Yes (Hospitalization)
  Sender: FDA-Public Use
  Company Number: None

PATIENT
  Age: 57 Year
  Sex: Female

DRUGS (1)
  1. ENBREL [Suspect]
     Active Substance: ETANERCEPT
     Indication: RHEUMATOID ARTHRITIS
     Dosage: ?          OTHER FREQUENCY:ONCE A WEEK;?
     Route: 058
     Dates: start: 20200512

REACTIONS (9)
  - Arthralgia [None]
  - Condition aggravated [None]
  - Urinary tract infection [None]
  - Migraine [None]
  - Pneumonia [None]
  - Arthritis [None]
  - Headache [None]
  - Therapy interrupted [None]
  - Pyrexia [None]

NARRATIVE: CASE EVENT DATE: 20200511
